FAERS Safety Report 12103867 (Version 1)
Quarter: 2016Q1

REPORT INFORMATION
  Report Type: Spontaneous
  Country: US (occurrence: US)
  Receive Date: 20160223
  Receipt Date: 20160223
  Transmission Date: 20160526
  Serious: Yes (Other)
  Sender: FDA-Public Use
  Company Number: US-HOSPIRA-3178376

PATIENT
  Age: 13 Year
  Sex: Male

DRUGS (6)
  1. DIAZEPAM. [Concomitant]
     Active Substance: DIAZEPAM
     Indication: PRODUCT USED FOR UNKNOWN INDICATION
  2. MORPHINE [Concomitant]
     Active Substance: MORPHINE
     Indication: CHOREOATHETOSIS
  3. LORAZEPAM. [Concomitant]
     Active Substance: LORAZEPAM
     Indication: CHOREOATHETOSIS
  4. ALBUTEROL                          /00139501/ [Concomitant]
     Active Substance: ALBUTEROL
     Indication: PRODUCT USED FOR UNKNOWN INDICATION
  5. PROPOFOL. [Suspect]
     Active Substance: PROPOFOL
     Indication: SEDATIVE THERAPY
     Route: 040
  6. CLONIDINE. [Concomitant]
     Active Substance: CLONIDINE
     Indication: PRODUCT USED FOR UNKNOWN INDICATION
     Dosage: EVERY EVENING

REACTIONS (1)
  - Priapism [Recovered/Resolved]
